FAERS Safety Report 4872773-5 (Version None)
Quarter: 2006Q1

REPORT INFORMATION
  Report Type: 
  Country: None (occurrence: None)
  Receive Date: 20060105
  Receipt Date: 20060103
  Transmission Date: 20060701
  Serious: Yes (Death)
  Sender: FDA-Public Use
  Company Number: NL-BRISTOL-MYERS SQUIBB COMPANY-13233747

PATIENT
  Age: 53 Year
  Sex: Female
  Weight: 130 kg

DRUGS (5)
  1. CISPLATIN [Suspect]
     Indication: ENDOMETRIAL CANCER
     Dates: start: 20051215, end: 20051215
  2. ADRIAMYCIN PFS [Suspect]
     Indication: ENDOMETRIAL CANCER
     Dates: start: 20051215, end: 20051215
  3. TEMAZEPAM [Concomitant]
  4. HYDROCHLOROTHIAZIDE [Concomitant]
     Dates: start: 20050531
  5. ENALAPRIL [Concomitant]
     Dates: start: 20050531

REACTIONS (1)
  - SUDDEN DEATH [None]
